FAERS Safety Report 25165464 (Version 1)
Quarter: 2025Q2

REPORT INFORMATION
  Report Type: Spontaneous
  Country: FR (occurrence: FR)
  Receive Date: 20250407
  Receipt Date: 20250407
  Transmission Date: 20250717
  Serious: Yes (Other)
  Sender: AUROBINDO
  Company Number: FR-CHEPLA-2025003683

PATIENT
  Age: 6 Week
  Sex: Female

DRUGS (3)
  1. PREDNISOLONE [Suspect]
     Active Substance: PREDNISOLONE
     Indication: Haemangioma
     Dosage: 2 MILLIGRAM/KILOGRAM, ONCE A DAY
     Route: 065
  2. PREDNISOLONE [Suspect]
     Active Substance: PREDNISOLONE
     Dosage: 3 MILLIGRAM/KILOGRAM, ONCE A DAY (INCREASED TO 3 MG/KG/DAY AFTER EIGHT WEEKS)
     Route: 065
  3. INTRON A [Suspect]
     Active Substance: INTERFERON ALFA-2B
     Indication: Haemangioma
     Dosage: 1 DOSAGE FORM, ONCE A DAY (1 SUBCUTANEOUS INJECTION PER DAY AT 3 MU/M2)
     Route: 058

REACTIONS (5)
  - Hepatic cytolysis [Unknown]
  - Sleep disorder [Unknown]
  - Influenza like illness [Recovering/Resolving]
  - Drug ineffective [Unknown]
  - Overdose [Unknown]
